FAERS Safety Report 10861852 (Version 1)
Quarter: 2015Q1

REPORT INFORMATION
  Report Type: Spontaneous
  Country: US (occurrence: US)
  Receive Date: 20150224
  Receipt Date: 20150224
  Transmission Date: 20150721
  Serious: Yes (Death)
  Sender: FDA-Public Use
  Company Number: US-BANPHARM-20153507

PATIENT
  Age: 60 Year
  Sex: Male

DRUGS (5)
  1. CLONAZEPAM. [Suspect]
     Active Substance: CLONAZEPAM
  2. OXAZEPAM. [Suspect]
     Active Substance: OXAZEPAM
  3. IBUPROFEN UNKNOWN PRODUCT [Suspect]
     Active Substance: IBUPROFEN
  4. TRAMADOL [Suspect]
     Active Substance: TRAMADOL
  5. TIZANIDINE (TIZANIDINE) [Suspect]
     Active Substance: TIZANIDINE

REACTIONS (2)
  - Completed suicide [Fatal]
  - Exposure via ingestion [None]
